FAERS Safety Report 4441813-X (Version None)
Quarter: 2004Q3

REPORT INFORMATION
  Report Type: 
  Country: None (occurrence: None)
  Receive Date: 20040901
  Receipt Date: 20040817
  Transmission Date: 20050211
  Serious: Yes (Death, Other)
  Sender: FDA-Public Use
  Company Number: 2004057204

PATIENT
  Age: 75 Year
  Sex: Male

DRUGS (6)
  1. UNASYN [Suspect]
     Indication: INFECTION PROPHYLAXIS
     Dosage: 3 GRAM, INTRAVENOUS
     Route: 042
     Dates: start: 20040101, end: 20040101
  2. ANTITHROMBIN III (ANTITHROMBIN III) [Concomitant]
  3. ALL OTHER THERAPEUTIC PRODUCTS (ALL OTHER THERAPEUTIC PRODUCTS) [Concomitant]
  4. CEFAZOLIN SODIUM [Concomitant]
  5. SULPERAZON (CEFOPERAZONE SODIUM, SULBACTAM SODIUM) [Concomitant]
  6. TIENAM (CILASTATIN, IMIPENEM) [Concomitant]

REACTIONS (1)
  - TOXIC EPIDERMAL NECROLYSIS [None]
